FAERS Safety Report 24825573 (Version 2)
Quarter: 2025Q1

REPORT INFORMATION
  Report Type: Spontaneous
  Country: US (occurrence: US)
  Receive Date: 20250109
  Receipt Date: 20250114
  Transmission Date: 20250409
  Serious: Yes (Death)
  Sender: PFIZER
  Company Number: US-PFIZER INC-202500005106

PATIENT
  Age: 77 Year
  Sex: Female

DRUGS (1)
  1. XELJANZ [Suspect]
     Active Substance: TOFACITINIB CITRATE
     Dosage: 5 MG, DAILY
     Route: 048
     Dates: start: 202008

REACTIONS (1)
  - Death [Fatal]

NARRATIVE: CASE EVENT DATE: 20250107
